FAERS Safety Report 9637370 (Version 1)
Quarter: 2013Q4

REPORT INFORMATION
  Report Type: Report from Study
  Country: BR (occurrence: BR)
  Receive Date: 20131022
  Receipt Date: 20131022
  Transmission Date: 20140711
  Serious: Yes (Hospitalization, Other)
  Sender: FDA-Public Use
  Company Number: PHHY2013BR117895

PATIENT
  Age: 82 Year
  Sex: Female
  Weight: 65 kg

DRUGS (15)
  1. ACLASTA [Suspect]
     Indication: OSTEOPOROSIS
     Dosage: 1 APPLICATION YEARLY
     Route: 042
     Dates: start: 201211
  2. AMLODIPINE BESYLATE [Concomitant]
     Indication: BLOOD PRESSURE ABNORMAL
     Dosage: 2 DF,IN THE MORNING AND AT NIGHT
     Route: 048
     Dates: start: 201307
  3. BENICAR [Concomitant]
     Indication: BLOOD PRESSURE ABNORMAL
     Dosage: 1 DF, IN THE MORNING
     Route: 048
     Dates: start: 201307
  4. FUROSEMIDE [Concomitant]
     Indication: DIARRHOEA
     Dosage: 2 DF, QD,5 YEARS AGO
     Route: 048
  5. ALENIA                             /01538101/ [Concomitant]
     Indication: ASTHMA
     Dosage: 2 DF,IN THE MORNING AND AT NIGHT
     Dates: start: 2009
  6. OMEPRAZOLE [Concomitant]
     Indication: HIATUS HERNIA
     Dosage: 1 DF, QD, 5 YEARS AGO
     Route: 048
  7. BETASERC [Concomitant]
     Indication: DIZZINESS
     Dosage: 2 DF, IN THE MORNING AND AT NIGHT, 2 YEARS AGO
     Route: 048
  8. BETASERC [Concomitant]
     Indication: VERTIGO
  9. ESPRAN [Concomitant]
     Indication: DEPRESSION
     Dosage: 2 DF,IN THE MORNING AND AT NIGHT, 1 YEAR AGO
     Route: 048
  10. RIVOTRIL [Concomitant]
     Indication: ANXIETY
     Dosage: 5 DRP, QD,2 YEARS AGO
     Route: 048
  11. LISADOR [Concomitant]
     Indication: PAIN IN EXTREMITY
     Dosage: 1 OR 2 TABLET, QD, IF PAIN , 1 YEAR AGO
  12. GLUCOSAMINE + CHONDROITIN [Concomitant]
     Indication: BONE DISORDER
     Dosage: 2 DF, QD
     Route: 048
     Dates: start: 2010
  13. CALCIUM D3                         /00944201/ [Concomitant]
     Indication: CALCIUM DEFICIENCY
     Dosage: 1 DF,QD, 1 YEAR AGO
     Route: 048
  14. PURAN T4 [Concomitant]
     Indication: THYROID DISORDER
     Dosage: 1 DF, QD,1 YEAR AGO
     Route: 048
  15. DIOVAN HCT [Concomitant]
     Indication: HYPERTENSION
     Dosage: 1 DF, QD
     Dates: end: 201307

REACTIONS (4)
  - Swelling [Not Recovered/Not Resolved]
  - Blister [Not Recovered/Not Resolved]
  - Bradycardia [Unknown]
  - Fatigue [Unknown]
